FAERS Safety Report 13578334 (Version 2)
Quarter: 2017Q2

REPORT INFORMATION
  Report Type: Report from Study
  Country: IT (occurrence: IT)
  Receive Date: 20170524
  Receipt Date: 20170529
  Transmission Date: 20170830
  Serious: Yes (Death)
  Sender: FDA-Public Use
  Company Number: IT-TEVA-770397ACC

PATIENT
  Age: 75 Year
  Sex: Female

DRUGS (7)
  1. LOPRESOR - 100 MG COMPRESSE RIVESTITE CON FILM [Concomitant]
     Active Substance: METOPROLOL TARTRATE
     Indication: HYPERTENSION
     Route: 048
     Dates: start: 20170123, end: 20170422
  2. DILZENE - 60 MG COMPRESSE A RILASCIO MODIFICATO [Suspect]
     Active Substance: DILTIAZEM HYDROCHLORIDE
     Indication: ATRIAL FIBRILLATION
     Route: 048
     Dates: start: 20170121, end: 20170422
  3. KCL RETARD - 600 MG COMPRESSE A RILASCIO PROLUNGATO [Concomitant]
     Indication: HYPERTENSION
     Route: 048
     Dates: start: 20170123, end: 20170422
  4. DIAZEPAM. [Suspect]
     Active Substance: DIAZEPAM
     Indication: ANXIETY
     Dosage: 200 MILLIGRAM DAILY;
     Route: 048
     Dates: start: 20170421, end: 20170422
  5. COUMADIN [Concomitant]
     Active Substance: WARFARIN SODIUM
     Indication: ATRIAL FIBRILLATION
     Route: 048
  6. XANAX - 0,25 MG COMPRESSE [Concomitant]
     Indication: ANXIETY
     Route: 048
     Dates: start: 20170123, end: 20170422
  7. LASIX [Concomitant]
     Active Substance: FUROSEMIDE
     Indication: HYPERTENSION
     Route: 048
     Dates: start: 20170123, end: 20170422

REACTIONS (2)
  - Drug use disorder [Fatal]
  - Respiratory arrest [Fatal]

NARRATIVE: CASE EVENT DATE: 20170422
